FAERS Safety Report 16890574 (Version 4)
Quarter: 2020Q4

REPORT INFORMATION
  Report Type: Spontaneous
  Country: US (occurrence: US)
  Receive Date: 20191007
  Receipt Date: 20201228
  Transmission Date: 20210113
  Serious: No
  Sender: FDA-Public Use
  Company Number: US-PFIZER INC-2019426254

PATIENT
  Age: 67 Year
  Sex: Female

DRUGS (13)
  1. GLUCOSAMINE SULFATE [Concomitant]
     Active Substance: GLUCOSAMINE SULFATE
     Dosage: UNK
  2. HYDROXYCHLOROQUINE [Concomitant]
     Active Substance: HYDROXYCHLOROQUINE
     Dosage: UNK
  3. DAILY VITE [ASCORBIC ACID;CALCIUM PANTOTHENATE;COLECALCIFEROL;CYANOCOB [Concomitant]
     Dosage: UNK
  4. GLUCOSAMINE + CHONDROITIN [CHONDROITIN SULFATE SODIUM;GLUCOSAMINE HYDR [Concomitant]
     Dosage: UNK
  5. BIOTIN [Concomitant]
     Active Substance: BIOTIN
     Dosage: UNK
  6. ATORVASTATIN [Concomitant]
     Active Substance: ATORVASTATIN
     Dosage: UNK
  7. LUTEIN [Concomitant]
     Active Substance: LUTEIN
     Dosage: UNK
  8. SYNTHROID [Concomitant]
     Active Substance: LEVOTHYROXINE SODIUM
     Dosage: UNK
  9. CALCIUM [Concomitant]
     Active Substance: CALCIUM
     Dosage: UNK
  10. TURMERIC CURCUMIN [Concomitant]
     Active Substance: HERBALS\TURMERIC
     Dosage: UNK
  11. PREDNISONE. [Concomitant]
     Active Substance: PREDNISONE
     Dosage: UNK
  12. XELJANZ XR [Suspect]
     Active Substance: TOFACITINIB CITRATE
     Indication: RHEUMATOID ARTHRITIS
     Dosage: 11 MG, DAILY
     Route: 048
     Dates: start: 201906
  13. BETAMETHASONE. [Concomitant]
     Active Substance: BETAMETHASONE
     Dosage: UNK

REACTIONS (5)
  - Condition aggravated [Recovering/Resolving]
  - Myalgia [Unknown]
  - Therapeutic response unexpected [Unknown]
  - Paraesthesia [Unknown]
  - Infected bite [Unknown]

NARRATIVE: CASE EVENT DATE: 2019
